FAERS Safety Report 11910165 (Version 1)
Quarter: 2016Q1

REPORT INFORMATION
  Report Type: Spontaneous
  Country: US (occurrence: US)
  Receive Date: 20160112
  Receipt Date: 20160112
  Transmission Date: 20160526
  Serious: No
  Sender: FDA-Public Use
  Company Number: US-PFIZER INC-2015442118

PATIENT
  Age: 10 Decade
  Sex: Female

DRUGS (10)
  1. NIACIN. [Suspect]
     Active Substance: NIACIN
     Dosage: UNK
  2. TENORMIN [Suspect]
     Active Substance: ATENOLOL
     Dosage: UNK
  3. ALTACE [Suspect]
     Active Substance: RAMIPRIL
     Dosage: UNK
  4. LIPITOR [Suspect]
     Active Substance: ATORVASTATIN CALCIUM
     Indication: BLOOD CHOLESTEROL INCREASED
     Dosage: UNK
  5. VITAMIN B12 [Suspect]
     Active Substance: CYANOCOBALAMIN
     Dosage: UNK
  6. UBIQUINONE [Suspect]
     Active Substance: UBIDECARENONE
     Dosage: UNK
  7. PRANDIN [Suspect]
     Active Substance: REPAGLINIDE
     Dosage: UNK
  8. EQUATE [Concomitant]
     Active Substance: UNSPECIFIED INGREDIENT
     Dosage: UNK
  9. CENTRUM SILVER WOMEN^S 50+ [Suspect]
     Active Substance: MINERALS\VITAMINS
     Dosage: UNK
  10. ARIMIDEX [Suspect]
     Active Substance: ANASTROZOLE
     Dosage: UNK

REACTIONS (1)
  - Pruritus [Recovered/Resolved]
